FAERS Safety Report 23127524 (Version 2)
Quarter: 2023Q4

REPORT INFORMATION
  Report Type: Spontaneous
  Country: US (occurrence: US)
  Receive Date: 20231031
  Receipt Date: 20231116
  Transmission Date: 20240110
  Serious: No
  Sender: FDA-Public Use
  Company Number: US-JNJFOC-20231050274

PATIENT
  Age: 57 Year
  Sex: Female

DRUGS (10)
  1. TYLENOL [Suspect]
     Active Substance: ACETAMINOPHEN
     Indication: Myalgia
     Route: 065
  2. ORENITRAM [Concomitant]
     Active Substance: TREPROSTINIL
     Indication: Pulmonary arterial hypertension
     Route: 048
     Dates: start: 202302
  3. ORENITRAM [Concomitant]
     Active Substance: TREPROSTINIL
     Route: 048
     Dates: start: 2023, end: 2023
  4. ORENITRAM [Concomitant]
     Active Substance: TREPROSTINIL
     Route: 048
     Dates: start: 2023
  5. ORENITRAM [Concomitant]
     Active Substance: TREPROSTINIL
     Dosage: 1 TABLET OF 0.125 MG AND 1 MG AND 2 TABLETS OF 0.25 MG), TID, ORAL USE
     Route: 048
     Dates: start: 2023
  6. ORENITRAM [Concomitant]
     Active Substance: TREPROSTINIL
     Route: 048
     Dates: start: 2023, end: 2023
  7. ORENITRAM [Concomitant]
     Active Substance: TREPROSTINIL
     Route: 048
     Dates: start: 2023, end: 2023
  8. ORENITRAM [Concomitant]
     Active Substance: TREPROSTINIL
     Route: 048
     Dates: start: 20230901, end: 202309
  9. ORENITRAM [Concomitant]
     Active Substance: TREPROSTINIL
     Route: 048
     Dates: start: 202309
  10. AMBRISENTAN [Concomitant]
     Active Substance: AMBRISENTAN
     Indication: Product used for unknown indication
     Route: 065

REACTIONS (1)
  - Therapeutic product effect incomplete [Unknown]

NARRATIVE: CASE EVENT DATE: 20230101
